FAERS Safety Report 4473997-1 (Version None)
Quarter: 2004Q4

REPORT INFORMATION
  Report Type: 
  Country: None (occurrence: None)
  Receive Date: 20041008
  Receipt Date: 20040917
  Transmission Date: 20050328
  Serious: Yes (Death)
  Sender: FDA-Public Use
  Company Number: USA040876437

PATIENT
  Age: 28 Year
  Sex: Male
  Weight: 60 kg

DRUGS (1)
  1. ZYPREXA [Suspect]
     Indication: ANXIETY
     Dosage: 5 MG DAY
     Dates: start: 20040518

REACTIONS (8)
  - ANXIETY [None]
  - COMPLETED SUICIDE [None]
  - GUN SHOT WOUND [None]
  - LOSS OF EMPLOYMENT [None]
  - MOOD ALTERED [None]
  - OBSESSIVE-COMPULSIVE DISORDER [None]
  - RELATIONSHIP BREAKDOWN [None]
  - TREATMENT NONCOMPLIANCE [None]
